FAERS Safety Report 9269365 (Version 2)
Quarter: 2013Q2

REPORT INFORMATION
  Report Type: Report from Study
  Country: KR (occurrence: KR)
  Receive Date: 20130503
  Receipt Date: 20130515
  Transmission Date: 20140414
  Serious: No
  Sender: FDA-Public Use
  Company Number: PHHY2013KR043519

PATIENT
  Age: 78 Year
  Sex: Male

DRUGS (1)
  1. EXELON [Suspect]
     Indication: DEMENTIA ALZHEIMER^S TYPE
     Dosage: 4.6 MG, QD (DAILY)
     Route: 062
     Dates: start: 20121224, end: 20130212

REACTIONS (1)
  - Application site rash [Recovered/Resolved]
